FAERS Safety Report 15920535 (Version 1)
Quarter: 2019Q1

REPORT INFORMATION
  Report Type: Report from Study
  Country: US (occurrence: US)
  Receive Date: 20190205
  Receipt Date: 20190205
  Transmission Date: 20190417
  Serious: Yes (Hospitalization)
  Sender: FDA-Public Use
  Company Number: US-BAYER-2019-021928

PATIENT
  Age: 63 Year
  Sex: Male

DRUGS (9)
  1. LISINOPRIL. [Concomitant]
     Active Substance: LISINOPRIL
  2. DOCUSATE SODIUM. [Concomitant]
     Active Substance: DOCUSATE SODIUM
  3. PROPRANOLOL [Concomitant]
     Active Substance: PROPRANOLOL HYDROCHLORIDE
  4. NORCO [Concomitant]
     Active Substance: ACETAMINOPHEN\HYDROCODONE BITARTRATE
  5. FENTANYL. [Concomitant]
     Active Substance: FENTANYL
  6. GABAPENTIN. [Concomitant]
     Active Substance: GABAPENTIN
  7. MULTIDAY [Concomitant]
  8. ZOFRAN [Concomitant]
     Active Substance: ONDANSETRON HYDROCHLORIDE
  9. NEXAVAR [Suspect]
     Active Substance: SORAFENIB
     Indication: HEPATOCELLULAR CARCINOMA
     Dosage: 400 MG, QD
     Route: 048
     Dates: start: 20181108

REACTIONS (7)
  - Off label use [None]
  - Throat irritation [Unknown]
  - Bone cancer [Unknown]
  - Hospitalisation [Unknown]
  - Adverse drug reaction [Unknown]
  - Feeding disorder [Unknown]
  - Peripheral swelling [Unknown]
